FAERS Safety Report 5289951-6 (Version None)
Quarter: 2007Q1

REPORT INFORMATION
  Report Type: 
  Country: None (occurrence: None)
  Receive Date: 20070116
  Receipt Date: 20060210
  Transmission Date: 20070707
  Serious: Yes (Hospitalization, Other)
  Sender: FDA-Public Use
  Company Number: HQ3180110JUL2002

PATIENT
  Age: 55 Year
  Sex: Female
  Weight: 72.64 kg

DRUGS (6)
  1. PREMPRO [Suspect]
     Indication: MENOPAUSE
     Dosage: 0.625 MG/2.5 MG DAILY, ORAL
     Route: 048
     Dates: start: 19920801, end: 20010601
  2. CALCIUM (CALCIUM) [Concomitant]
  3. VITAMIN E [Concomitant]
  4. ZOLOFT [Concomitant]
  5. INDERAL [Concomitant]
  6. CENTRUM SILVER (MULTIVITAMIN/MULTIMINERAL) [Concomitant]

REACTIONS (1)
  - BREAST CANCER FEMALE [None]
